FAERS Safety Report 16690467 (Version 1)
Quarter: 2019Q3

REPORT INFORMATION
  Report Type: Spontaneous
  Country: BR (occurrence: BR)
  Receive Date: 20190810
  Receipt Date: 20190810
  Transmission Date: 20191004
  Serious: Yes (Hospitalization, Other)
  Sender: FDA-Public Use
  Company Number: BR-TAKEDA-2019TUS047327

PATIENT
  Sex: Male
  Weight: 81 kg

DRUGS (2)
  1. NESINA MET [Suspect]
     Active Substance: ALOGLIPTIN BENZOATE\METFORMIN HYDROCHLORIDE
     Indication: DIABETES MELLITUS
     Dosage: 12.5/850 MILLIGRAM, BID
     Route: 048
  2. AZUKON [Concomitant]
     Active Substance: GLICLAZIDE
     Indication: DIABETES MELLITUS
     Dosage: 30 MILLIGRAM, QD
     Route: 048

REACTIONS (5)
  - Dyspepsia [Unknown]
  - Malaise [Unknown]
  - Abdominal pain upper [Unknown]
  - Hepatitis [Not Recovered/Not Resolved]
  - Pancreatitis [Recovered/Resolved]

NARRATIVE: CASE EVENT DATE: 2019
